FAERS Safety Report 8355514-9 (Version None)
Quarter: 2012Q2

REPORT INFORMATION
  Report Type: 
  Country: None (occurrence: None)
  Receive Date: 20120512
  Receipt Date: 20120416
  Transmission Date: 20120825
  Serious: Yes (Other)
  Sender: FDA-Public Use
  Company Number: PHHY2012AU027189

PATIENT
  Age: 33 Year
  Sex: Female
  Weight: 65 kg

DRUGS (4)
  1. PROSTINE [Concomitant]
     Dosage: 2 MG X 2
  2. SYNTOCINON [Suspect]
     Dosage: 10 IU, UNK
     Route: 030
     Dates: start: 20120319
  3. OXYTOCIN [Suspect]
     Dosage: 1 IU, UNK
     Route: 030
     Dates: start: 20120319
  4. SYNTOCINON [Suspect]
     Dosage: 40 IU, UNK
     Dates: start: 20120319

REACTIONS (2)
  - POSTPARTUM HAEMORRHAGE [None]
  - MATERNAL EXPOSURE DURING PREGNANCY [None]
